FAERS Safety Report 6967439-1 (Version None)
Quarter: 2010Q3

REPORT INFORMATION
  Report Type: 
  Country: None (occurrence: None)
  Receive Date: 20100907
  Receipt Date: 20100823
  Transmission Date: 20110219
  Serious: Yes (Other)
  Sender: FDA-Public Use
  Company Number: PHHY2010DE56311

PATIENT
  Age: 75 Year
  Sex: Female

DRUGS (1)
  1. RASILEZ [Suspect]
     Dosage: 300 MG, QD
     Route: 048
     Dates: start: 20080101

REACTIONS (4)
  - ANGINA PECTORIS [None]
  - CONFUSIONAL STATE [None]
  - IRRITABILITY [None]
  - NAUSEA [None]
